FAERS Safety Report 5342925-9 (Version None)
Quarter: 2007Q2

REPORT INFORMATION
  Report Type: 
  Country: None (occurrence: None)
  Receive Date: 20070601
  Receipt Date: 20070516
  Transmission Date: 20071010
  Serious: Yes (Hospitalization)
  Sender: FDA-Public Use
  Company Number: US-AMGEN-KDL212332

PATIENT
  Sex: Female
  Weight: 65.4 kg

DRUGS (10)
  1. NEULASTA [Suspect]
     Indication: CHEMOTHERAPY
     Route: 058
     Dates: start: 20070213
  2. DOXORUBICIN HYDROCHLORIDE [Concomitant]
     Route: 065
     Dates: start: 20070212
  3. OXYCODONE HCL [Concomitant]
     Route: 065
     Dates: start: 20070212
  4. VITAMIN B6 [Concomitant]
     Route: 065
     Dates: start: 20060913
  5. SENNA CONCENTRATE [Concomitant]
     Route: 065
     Dates: start: 20070212
  6. DOCUSATE SODIUM [Concomitant]
     Route: 065
     Dates: start: 20070212
  7. ALBUTEROL [Concomitant]
     Route: 065
     Dates: start: 20070206
  8. GRANISETRON [Concomitant]
     Route: 065
     Dates: start: 20070212
  9. DARBEPOETIN ALFA [Concomitant]
     Route: 065
     Dates: start: 20070110
  10. ZOLEDRONIC ACID [Concomitant]
     Route: 065
     Dates: start: 20061003

REACTIONS (1)
  - PLEURAL EFFUSION [None]
